FAERS Safety Report 5302916-0 (Version None)
Quarter: 2007Q2

REPORT INFORMATION
  Report Type: 
  Country: None (occurrence: None)
  Receive Date: 20070419
  Receipt Date: 20070419
  Transmission Date: 20071010
  Serious: Yes (Hospitalization)
  Sender: FDA-Public Use
  Company Number: None

PATIENT
  Sex: Male
  Weight: 73.48 kg

DRUGS (4)
  1. FLUOROURACIL [Suspect]
     Dosage: 5250 MG
  2. BEVACIZUMAB (RHUMAB VEGF) [Suspect]
     Dosage: 400 MG
  3. LEUCOVORIN CALCIUM [Suspect]
     Dosage: 750 MG
  4. ELOXATIN [Suspect]
     Dosage: 160 MG
     Dates: end: 20070403

REACTIONS (4)
  - DEHYDRATION [None]
  - DIARRHOEA [None]
  - NAUSEA [None]
  - VOMITING [None]
